FAERS Safety Report 6242001-7 (Version None)
Quarter: 2009Q2

REPORT INFORMATION
  Report Type: 
  Country: None (occurrence: None)
  Receive Date: 20090622
  Receipt Date: 20090615
  Transmission Date: 20091009
  Serious: Yes (Other)
  Sender: FDA-Public Use
  Company Number: CHPA2009US13569

PATIENT

DRUGS (1)
  1. VOLTAREN [Suspect]
     Dosage: TOPICAL
     Route: 061

REACTIONS (3)
  - CARDIAC ENZYMES INCREASED [None]
  - HEART RATE DECREASED [None]
  - SYNCOPE [None]
